FAERS Safety Report 12257750 (Version 3)
Quarter: 2016Q2

REPORT INFORMATION
  Report Type: Report from Study
  Country: US (occurrence: US)
  Receive Date: 20160412
  Receipt Date: 20160627
  Transmission Date: 20160815
  Serious: No
  Sender: FDA-Public Use
  Company Number: PHEH2016US008753

PATIENT
  Sex: Female

DRUGS (1)
  1. EXTAVIA [Suspect]
     Active Substance: INTERFERON BETA-1B
     Indication: MULTIPLE SCLEROSIS
     Dosage: 1 ML
     Route: 058
     Dates: start: 20160104

REACTIONS (5)
  - Device use error [Unknown]
  - Injection site erythema [Unknown]
  - Injection site pain [Unknown]
  - Sinus disorder [Not Recovered/Not Resolved]
  - Injection site haemorrhage [Recovered/Resolved]
